FAERS Safety Report 9914059 (Version 1)
Quarter: 2014Q1

REPORT INFORMATION
  Report Type: Spontaneous
  Country: DE (occurrence: DE)
  Receive Date: 20140220
  Receipt Date: 20140220
  Transmission Date: 20141002
  Serious: Yes (Congenital Anomaly, Other)
  Sender: FDA-Public Use
  Company Number: DE-GLAXOSMITHKLINE-D0082874A

PATIENT
  Age: 0 Day
  Sex: Male
  Weight: 2.1 kg

DRUGS (4)
  1. LAMOTRIGINE [Suspect]
     Indication: DEPRESSION
     Dosage: 150MG PER DAY
     Route: 064
     Dates: start: 20120525, end: 20130207
  2. ESCITALOPRAM [Suspect]
     Indication: DEPRESSION
     Dosage: 20MG PER DAY
     Route: 064
     Dates: start: 20120525, end: 20130207
  3. VITAMIN WITH FOLATE [Concomitant]
     Indication: PROPHYLAXIS OF NEURAL TUBE DEFECT
     Dosage: .8MG PER DAY
     Route: 064
     Dates: end: 20130207
  4. IODINE [Concomitant]
     Indication: PROPHYLAXIS OF NEURAL TUBE DEFECT
     Route: 064
     Dates: end: 20130207

REACTIONS (5)
  - Hypospadias [Not Recovered/Not Resolved]
  - Motor developmental delay [Unknown]
  - Hypotonia [Unknown]
  - Small for dates baby [Recovering/Resolving]
  - Premature baby [Unknown]
